FAERS Safety Report 18144537 (Version 1)
Quarter: 2020Q3

REPORT INFORMATION
  Report Type: Report from Study
  Country: CR (occurrence: CR)
  Receive Date: 20200813
  Receipt Date: 20200813
  Transmission Date: 20201103
  Serious: Yes (Disabling)
  Sender: FDA-Public Use
  Company Number: NVSC2020CR221229

PATIENT
  Sex: Female
  Weight: 81.6 kg

DRUGS (2)
  1. GABAPENTIN. [Suspect]
     Active Substance: GABAPENTIN
     Indication: SYNCOPE
     Dosage: 3 DF, QD
     Route: 065
     Dates: start: 2013
  2. GABAPENTIN. [Suspect]
     Active Substance: GABAPENTIN
     Indication: BALANCE DISORDER

REACTIONS (4)
  - Hypertension [Unknown]
  - Arthropathy [Unknown]
  - Product use in unapproved indication [Unknown]
  - Pain [Unknown]

NARRATIVE: CASE EVENT DATE: 2013
